FAERS Safety Report 4340973-9 (Version None)
Quarter: 2004Q2

REPORT INFORMATION
  Report Type: 
  Country: None (occurrence: None)
  Receive Date: 20040413
  Receipt Date: 20040330
  Transmission Date: 20050107
  Serious: Yes (Other)
  Sender: FDA-Public Use
  Company Number: 2004207009GB

PATIENT
  Age: 54 Year
  Sex: Female

DRUGS (3)
  1. BEXTRA [Suspect]
     Indication: RHEUMATOID ARTHRITIS
     Dosage: 10 MG, QD,ORAL
     Route: 048
     Dates: start: 20040212, end: 20040309
  2. LANSOPRAZOLE [Concomitant]
  3. PREDNISOLONE [Concomitant]

REACTIONS (1)
  - JAUNDICE [None]
